FAERS Safety Report 6070248-1 (Version None)
Quarter: 2009Q1

REPORT INFORMATION
  Report Type: 
  Country: None (occurrence: None)
  Receive Date: 20090209
  Receipt Date: 20090127
  Transmission Date: 20090719
  Serious: Yes (Other)
  Sender: FDA-Public Use
  Company Number: US-ROCHE-611192

PATIENT
  Age: 64 Year
  Sex: Female

DRUGS (7)
  1. BONIVA [Suspect]
     Indication: OSTEOPENIA
     Route: 065
     Dates: start: 20060101
  2. INSULIN [Concomitant]
  3. SYNTHROID [Concomitant]
  4. METFORMIN HCL [Concomitant]
  5. CLONIDINE HCL [Concomitant]
  6. GLYBURIDE [Concomitant]
  7. CALCIUM [Concomitant]
     Dosage: DRUG: CALCIUM W/D

REACTIONS (1)
  - COLON CANCER [None]
